FAERS Safety Report 10652558 (Version 1)
Quarter: 2014Q4

REPORT INFORMATION
  Report Type: Spontaneous
  Country: US (occurrence: US)
  Receive Date: 20141215
  Receipt Date: 20141215
  Transmission Date: 20150529
  Serious: Yes (Other)
  Sender: FDA-Public Use
  Company Number: US-BAYER-2014-183077

PATIENT
  Age: 45 Year
  Sex: Female

DRUGS (1)
  1. MIRENA [Suspect]
     Active Substance: LEVONORGESTREL
     Dosage: 20 MCG/24HR, CONT
     Route: 015
     Dates: start: 20080717, end: 20121212

REACTIONS (8)
  - Genital haemorrhage [None]
  - Device dislocation [None]
  - Injury [None]
  - Injury associated with device [None]
  - Ovarian cyst [None]
  - Abdominal pain [None]
  - Medical device pain [None]
  - Breast cyst [None]

NARRATIVE: CASE EVENT DATE: 20121212
